FAERS Safety Report 26034275 (Version 1)
Quarter: 2025Q4

REPORT INFORMATION
  Report Type: Spontaneous
  Country: CN (occurrence: CN)
  Receive Date: 20251112
  Receipt Date: 20251112
  Transmission Date: 20260119
  Serious: Yes (Other)
  Sender: AMGEN
  Company Number: CN-AMGEN-CHNSP2025223134

PATIENT

DRUGS (1)
  1. XGEVA [Suspect]
     Active Substance: DENOSUMAB
     Indication: Plasma cell myeloma
     Dosage: 120 MILLIGRAM, QMO (Q28 DAYS)
     Route: 058

REACTIONS (3)
  - Plasma cell myeloma [Unknown]
  - Osteonecrosis of jaw [Unknown]
  - Bone density decreased [Unknown]
